FAERS Safety Report 5789292-4 (Version None)
Quarter: 2008Q2

REPORT INFORMATION
  Report Type: 
  Country: None (occurrence: None)
  Receive Date: 20080625
  Receipt Date: 20080625
  Transmission Date: 20081010
  Serious: Yes (Hospitalization)
  Sender: FDA-Public Use
  Company Number: None

PATIENT
  Sex: Female
  Weight: 72.4394 kg

DRUGS (2)
  1. RALTEGRAVIR [Suspect]
     Indication: HIV INFECTION
     Dosage: 400MG BID PO
     Route: 048
     Dates: start: 20080610, end: 20080624
  2. GABAPENTIN [Suspect]

REACTIONS (2)
  - MUSCULAR WEAKNESS [None]
  - PAIN IN EXTREMITY [None]
